FAERS Safety Report 8608164-0 (Version None)
Quarter: 2012Q3

REPORT INFORMATION
  Report Type: 
  Country: None (occurrence: None)
  Receive Date: 20120809
  Receipt Date: 20120809
  Transmission Date: 20120928
  Serious: No
  Sender: FDA-Public Use
  Company Number: None

PATIENT
  Sex: Female

DRUGS (1)
  1. PROMETRIUM [Suspect]
     Dosage: 2 CAPS AT BEDTIME PO
     Route: 048
     Dates: start: 20120529, end: 20120803

REACTIONS (4)
  - SPEECH DISORDER [None]
  - FEELING ABNORMAL [None]
  - DELIRIUM [None]
  - MENTAL DISORDER [None]
